FAERS Safety Report 13706265 (Version 3)
Quarter: 2017Q3

REPORT INFORMATION
  Report Type: Spontaneous
  Country: US (occurrence: US)
  Receive Date: 20170630
  Receipt Date: 20170810
  Transmission Date: 20171127
  Serious: No
  Sender: FDA-Public Use
  Company Number: US-PFIZER INC-2017281708

PATIENT
  Age: 64 Year
  Sex: Female

DRUGS (2)
  1. METHOTREXATE SODIUM. [Suspect]
     Active Substance: METHOTREXATE SODIUM
     Dosage: UNK
  2. ENBREL [Suspect]
     Active Substance: ETANERCEPT
     Dosage: UNK

REACTIONS (13)
  - Joint range of motion decreased [Unknown]
  - Insomnia [Unknown]
  - Synovitis [Unknown]
  - Spinal pain [Unknown]
  - Alanine aminotransferase abnormal [Unknown]
  - Joint swelling [Unknown]
  - Depression [Unknown]
  - Myofascial pain syndrome [Unknown]
  - Drug ineffective [Unknown]
  - Fatigue [Unknown]
  - Crepitations [Unknown]
  - Myalgia [Unknown]
  - Arthralgia [Unknown]
